FAERS Safety Report 4377344-5 (Version None)
Quarter: 2004Q2

REPORT INFORMATION
  Report Type: 
  Country: None (occurrence: None)
  Receive Date: 20040609
  Receipt Date: 20040406
  Transmission Date: 20050107
  Serious: No
  Sender: FDA-Public Use
  Company Number: 2004208462US

PATIENT
  Age: 55 Year
  Sex: Female

DRUGS (2)
  1. BEXTRA [Suspect]
     Indication: BACK PAIN
     Dosage: 20 MG, QD
     Dates: start: 20040401, end: 20040406
  2. LIPITOR [Concomitant]

REACTIONS (3)
  - HEADACHE [None]
  - ORAL PAIN [None]
  - TOOTHACHE [None]
